FAERS Safety Report 15015006 (Version 1)
Quarter: 2018Q2

REPORT INFORMATION
  Report Type: Spontaneous
  Country: DE (occurrence: DE)
  Receive Date: 20180615
  Receipt Date: 20180615
  Transmission Date: 20180711
  Serious: Yes (Hospitalization)
  Sender: FDA-Public Use
  Company Number: DE-TEVA-2018-DE-908621

PATIENT
  Age: 79 Year
  Sex: Male

DRUGS (8)
  1. METOPROLOL. [Suspect]
     Active Substance: METOPROLOL
     Dosage: 1-0-0-0
     Route: 065
  2. DONEPEZIL. [Suspect]
     Active Substance: DONEPEZIL
     Dosage: 0-0-0-1
     Route: 065
  3. ATORVASTATIN [Concomitant]
     Active Substance: ATORVASTATIN
     Dosage: 0-0-1-0
  4. PANTOPRAZOL [Concomitant]
     Active Substance: PANTOPRAZOLE SODIUM
     Dosage: 1-0-0-0
  5. RAMIPRIL. [Suspect]
     Active Substance: RAMIPRIL
     Dosage: 1-0-0-0
     Route: 065
  6. ALLO-CT 300MG [Concomitant]
     Dosage: 0-0-1-0
  7. ERYFER 100MG [Concomitant]
     Dosage: , 1-0-0-0
  8. ASS 100 [Concomitant]
     Active Substance: ASPIRIN
     Dosage: , 0-1-0-0

REACTIONS (2)
  - Fall [Unknown]
  - Fracture [Unknown]
